FAERS Safety Report 13081753 (Version 11)
Quarter: 2018Q1

REPORT INFORMATION
  Report Type: Spontaneous
  Country: US (occurrence: US)
  Receive Date: 20170103
  Receipt Date: 20180220
  Transmission Date: 20180508
  Serious: No
  Sender: FDA-Public Use
  Company Number: US-PFIZER INC-2016592967

PATIENT
  Age: 70 Year
  Sex: Female
  Weight: 57 kg

DRUGS (7)
  1. IBRANCE [Suspect]
     Active Substance: PALBOCICLIB
     Dosage: 125 MG, CYCLIC
     Route: 048
     Dates: start: 20161227
  2. IBRANCE [Suspect]
     Active Substance: PALBOCICLIB
     Dosage: 125 MG, CYCLIC (DAY 1-21 EVERY 28 DAYS)
     Route: 048
     Dates: start: 20161129
  3. IBRANCE [Suspect]
     Active Substance: PALBOCICLIB
     Dosage: 75 MG, CYCLIC (DAY 1-21 Q28 DAYS)
     Route: 048
  4. IBRANCE [Suspect]
     Active Substance: PALBOCICLIB
     Dosage: 100 MG, CYCLIC (DAY 1-21 EVERY 28 DAYS)
     Route: 048
  5. IBRANCE [Suspect]
     Active Substance: PALBOCICLIB
     Dosage: 100 MG, CYCLIC (DAY 1-21 EVERY 28 DAYS)
     Route: 048
  6. IBRANCE [Suspect]
     Active Substance: PALBOCICLIB
     Indication: BREAST CANCER METASTATIC
     Dosage: 75 MG, CYCLIC (DAY 1-21 EVERY 28 DAYS)
     Route: 048
     Dates: start: 20161029
  7. IBRANCE [Suspect]
     Active Substance: PALBOCICLIB
     Dosage: 75 MG, CYCLIC (DAYS 1-21 Q 28 DAYS)
     Route: 048

REACTIONS (26)
  - Nasal congestion [Unknown]
  - White blood cell count decreased [Not Recovered/Not Resolved]
  - Alopecia [Unknown]
  - Red blood cell count decreased [Not Recovered/Not Resolved]
  - Paranasal sinus hypersecretion [Unknown]
  - Platelet count decreased [Not Recovered/Not Resolved]
  - Full blood count decreased [Unknown]
  - Neutrophil count decreased [Unknown]
  - Nasopharyngitis [Unknown]
  - Fatigue [Unknown]
  - Dry mouth [Unknown]
  - Asthenia [Unknown]
  - Neuropathy peripheral [Unknown]
  - Blood creatinine increased [Not Recovered/Not Resolved]
  - Blood urea increased [Not Recovered/Not Resolved]
  - Drug dose omission [Unknown]
  - Neoplasm progression [Unknown]
  - Throat irritation [Unknown]
  - Muscle spasms [Recovered/Resolved]
  - Blood glucose increased [Unknown]
  - Pyrexia [Unknown]
  - Hot flush [Unknown]
  - Feeling cold [Unknown]
  - Rhinorrhoea [Unknown]
  - Haemoptysis [Unknown]
  - Constipation [Recovering/Resolving]
